FAERS Safety Report 9625839 (Version 1)
Quarter: 2013Q4

REPORT INFORMATION
  Report Type: Spontaneous
  Country: US (occurrence: None)
  Receive Date: 20131015
  Receipt Date: 20131015
  Transmission Date: 20140711
  Serious: Yes (Disabling)
  Sender: FDA-Public Use
  Company Number: None

PATIENT
  Age: 60 Year
  Sex: Female
  Weight: 65.77 kg

DRUGS (1)
  1. CIPRO [Suspect]
     Indication: CHRONIC SINUSITIS
     Dosage: 1 CAPSULE
     Route: 048
     Dates: start: 20030101, end: 20030601

REACTIONS (2)
  - Pain [None]
  - Tendonitis [None]
